FAERS Safety Report 4266287-3 (Version None)
Quarter: 2004Q1

REPORT INFORMATION
  Report Type: 
  Country: None (occurrence: None)
  Receive Date: 20040107
  Receipt Date: 20030826
  Transmission Date: 20041129
  Serious: Yes (Life-Threatening, Other)
  Sender: FDA-Public Use
  Company Number: WAES 0308USA02550

PATIENT
  Sex: Female
  Weight: 60 kg

DRUGS (4)
  1. CALTRATE [Concomitant]
  2. ZETIA [Suspect]
     Indication: HYPERCHOLESTEROLAEMIA
     Route: 048
     Dates: start: 20030811, end: 20030814
  3. ZETIA [Suspect]
     Route: 048
     Dates: start: 20030811, end: 20030814
  4. IRON (UNSPECIFIED) [Concomitant]

REACTIONS (1)
  - ANAPHYLACTIC REACTION [None]
